FAERS Safety Report 5716044-3 (Version None)
Quarter: 2008Q2

REPORT INFORMATION
  Report Type: 
  Country: None (occurrence: None)
  Receive Date: 20080423
  Receipt Date: 20080423
  Transmission Date: 20081010
  Serious: Yes (Other)
  Sender: FDA-Public Use
  Company Number: None

PATIENT
  Sex: Female
  Weight: 87.5442 kg

DRUGS (1)
  1. LYRICA [Suspect]
     Indication: NEUROPATHY PERIPHERAL
     Dosage: 1 CAPSULE 2 TIMES DAILY PO
     Route: 048
     Dates: start: 20080320, end: 20080416

REACTIONS (6)
  - AGGRESSION [None]
  - HYPERSOMNIA [None]
  - MALAISE [None]
  - NIGHTMARE [None]
  - PANIC REACTION [None]
  - SCREAMING [None]
